FAERS Safety Report 8609596 (Version 2)
Quarter: 2014Q1

REPORT INFORMATION
  Report Type: Spontaneous
  Country: US (occurrence: None)
  Receive Date: 20120323
  Receipt Date: 20130305
  Transmission Date: 20141002
  Serious: Yes (Hospitalization)
  Sender: FDA-Public Use
  Company Number: 163-21880-11120581

PATIENT
  Age: 75 Year
  Sex: Male

DRUGS (10)
  1. REVLIMID [Suspect]
     Indication: B-CELL LYMPHOMA
     Dosage: 10 MG, D 1-21 Q 28 DAYS, PO
     Route: 048
     Dates: start: 20111103
  2. POTASSIUM [Concomitant]
  3. DILTIAZEM HYDROCHLORIDE [Concomitant]
  4. EPIVIR [Concomitant]
  5. ZEGERID (OMEPRAZOLE) [Concomitant]
  6. LORTAB [Concomitant]
  7. PREDNISONE [Concomitant]
  8. CARDIZEM (DILTIAZEM HYDROCHLORIDE) [Concomitant]
  9. PROTONIX [Concomitant]
  10. MICRO-K (POTASSIUM CHLORIDE) [Concomitant]

REACTIONS (1)
  - Pneumonia [None]
